FAERS Safety Report 12485199 (Version 2)
Quarter: 2016Q3

REPORT INFORMATION
  Report Type: Spontaneous
  Country: US (occurrence: US)
  Receive Date: 20160621
  Receipt Date: 20160706
  Transmission Date: 20161109
  Serious: Yes (Other)
  Sender: FDA-Public Use
  Company Number: US-LPDUSPRD-20160508

PATIENT
  Age: 71 Year
  Sex: Female
  Weight: 66.7 kg

DRUGS (15)
  1. LEVOTHYROXINE. [Concomitant]
     Active Substance: LEVOTHYROXINE
     Dosage: 150 MCG DAILY
     Route: 065
  2. NORCO [Concomitant]
     Active Substance: ACETAMINOPHEN\HYDROCODONE BITARTRATE
     Dosage: 10-325 MG 1 Q8 PRN
     Route: 065
  3. VITAMIN E [Concomitant]
     Active Substance: .ALPHA.-TOCOPHEROL
     Dosage: 100 IU DAILY
     Route: 065
  4. ESOMEPRAZOLE [Concomitant]
     Active Substance: ESOMEPRAZOLE
     Dosage: 40 MG DAILY
     Route: 065
  5. LOSARTAN. [Concomitant]
     Active Substance: LOSARTAN
     Dosage: 25 MG DAILY
     Route: 065
  6. FUROSEMIDE. [Concomitant]
     Active Substance: FUROSEMIDE
     Dosage: 40 MG IN AM, 20MG PM
     Route: 065
  7. INJECTAFER [Suspect]
     Active Substance: FERRIC CARBOXYMALTOSE
     Dosage: 750 MG WEEKLY X2
     Route: 040
     Dates: start: 20160331, end: 20160621
  8. CARVEDILOL. [Concomitant]
     Active Substance: CARVEDILOL
     Dosage: 3 125 MG BID
     Route: 065
  9. CALCIUM CARBONATE/VITAMIN D [Concomitant]
     Active Substance: CALCIUM CARBONATE\VITAMIN D
     Dosage: 1200 MG DAILY
     Route: 065
  10. DILTIAZEM. [Concomitant]
     Active Substance: DILTIAZEM
     Dosage: 60 MG BID
     Route: 065
  11. NO DRUG NAME [Concomitant]
  12. ALBUTEROL INHALER [Concomitant]
     Active Substance: ALBUTEROL
     Dosage: 1 PUFF BID
     Route: 055
  13. MOMETASONE-FORMOTEROL [Concomitant]
     Dosage: 200-5 MCG/ACT 1 DAILY
     Route: 055
  14. NILOTINIB [Concomitant]
     Active Substance: NILOTINIB
     Dosage: 150 MG QOD
     Route: 065
  15. ASPIRIN. [Concomitant]
     Active Substance: ASPIRIN
     Dosage: 81 MG DAILY
     Route: 065

REACTIONS (2)
  - Blood phosphorus decreased [Unknown]
  - Blood creatinine decreased [Unknown]

NARRATIVE: CASE EVENT DATE: 20160408
